FAERS Safety Report 18846408 (Version 1)
Quarter: 2021Q1

REPORT INFORMATION
  Report Type: Spontaneous
  Country: BR (occurrence: BR)
  Receive Date: 20210204
  Receipt Date: 20210204
  Transmission Date: 20210419
  Serious: Yes (Hospitalization)
  Sender: FDA-Public Use
  Company Number: BR-PFIZER INC-2021080019

PATIENT

DRUGS (2)
  1. GOLIMUMAB [Suspect]
     Active Substance: GOLIMUMAB
  2. METHOTREXATE SODIUM. [Suspect]
     Active Substance: METHOTREXATE SODIUM

REACTIONS (1)
  - Lipoma [Unknown]

NARRATIVE: CASE EVENT DATE: 201403
